FAERS Safety Report 26099778 (Version 1)
Quarter: 2025Q4

REPORT INFORMATION
  Report Type: Spontaneous
  Country: CN (occurrence: CN)
  Receive Date: 20251128
  Receipt Date: 20251128
  Transmission Date: 20260117
  Serious: Yes (Other)
  Sender: ALKEM
  Company Number: CN-ALKEM LABORATORIES LIMITED-CN-ALKEM-2025-11216

PATIENT
  Age: 25 Year
  Sex: Male

DRUGS (17)
  1. LAMOTRIGINE [Suspect]
     Active Substance: LAMOTRIGINE
     Indication: Seizure
     Dosage: 150 MG/DAY
     Route: 065
     Dates: start: 2023
  2. LAMOTRIGINE [Suspect]
     Active Substance: LAMOTRIGINE
     Indication: Schizophrenia
     Dosage: 100 MG/DAY
     Route: 065
  3. OLANZAPINE [Suspect]
     Active Substance: OLANZAPINE
     Indication: Schizophrenia
     Dosage: 12.5 MG/DAY
     Route: 065
     Dates: start: 2020
  4. OLANZAPINE [Suspect]
     Active Substance: OLANZAPINE
     Dosage: 15 MG/DAY
     Route: 065
     Dates: start: 2023
  5. CLOZAPINE [Suspect]
     Active Substance: CLOZAPINE
     Indication: Schizophrenia
     Dosage: 200 MG/DAY
     Route: 065
     Dates: start: 2018
  6. CLOZAPINE [Suspect]
     Active Substance: CLOZAPINE
     Dosage: 150 MG/DAY
     Route: 065
     Dates: start: 2020
  7. CLOZAPINE [Suspect]
     Active Substance: CLOZAPINE
     Dosage: 100 MG/DAY
     Route: 065
     Dates: start: 2023
  8. AMISULPRIDE [Suspect]
     Active Substance: AMISULPRIDE
     Indication: Schizophrenia
     Dosage: 1200 MG/DAY
     Route: 065
     Dates: start: 2023
  9. RISPERIDONE [Suspect]
     Active Substance: RISPERIDONE
     Indication: Schizophrenia
     Dosage: 4 MG/DAY
     Route: 065
     Dates: start: 2018
  10. RISPERIDONE [Suspect]
     Active Substance: RISPERIDONE
     Dosage: UNK
     Route: 065
     Dates: start: 2020
  11. RISPERIDONE [Suspect]
     Active Substance: RISPERIDONE
     Dosage: 4 MG/DAY
     Route: 065
     Dates: start: 2023
  12. RISPERIDONE [Suspect]
     Active Substance: RISPERIDONE
     Dosage: 2 MG/DAY
     Route: 065
     Dates: start: 2023
  13. LEVOCARNITINE [Concomitant]
     Active Substance: LEVOCARNITINE
     Indication: Isovaleric acidaemia
     Dosage: 3 GRAM, QD
     Route: 065
  14. LITHIUM CARBONATE [Concomitant]
     Active Substance: LITHIUM CARBONATE
     Indication: Mood swings
     Dosage: 1200 MG/DAY
     Route: 065
     Dates: start: 2018
  15. LITHIUM CARBONATE [Concomitant]
     Active Substance: LITHIUM CARBONATE
     Dosage: 900 MG/DAY
     Route: 065
  16. PEROSPIRONE [Concomitant]
     Active Substance: PEROSPIRONE
     Indication: Schizophrenia
     Dosage: 32 MG/DAY
     Route: 065
     Dates: start: 2023
  17. QUETIAPINE [Concomitant]
     Active Substance: QUETIAPINE
     Indication: Schizophrenia
     Dosage: 100 MG/DAY
     Route: 065
     Dates: start: 2020

REACTIONS (2)
  - Seizure [Unknown]
  - Therapy partial responder [Unknown]
